FAERS Safety Report 9406927 (Version 7)
Quarter: 2013Q4

REPORT INFORMATION
  Report Type: Spontaneous
  Country: US (occurrence: US)
  Receive Date: 20130718
  Receipt Date: 20131206
  Transmission Date: 20140711
  Serious: Yes (Death, Life-Threatening, Hospitalization, Other)
  Sender: FDA-Public Use
  Company Number: US-PFIZER INC-2013208076

PATIENT
  Age: 69 Year
  Sex: Male
  Weight: 89.8 kg

DRUGS (27)
  1. SUTENT [Suspect]
     Indication: METASTATIC RENAL CELL CARCINOMA
     Dosage: 50 MG, DAILY (4 WKS ON AND 2 WKS OFF)
     Route: 048
     Dates: start: 20130627, end: 20130908
  2. COUMADIN [Concomitant]
     Indication: ATRIAL FIBRILLATION
     Dosage: 5 MG, 1X/DAY
     Route: 048
  3. METOPROLOL [Concomitant]
     Dosage: UNK
  4. OXYCODONE [Concomitant]
     Dosage: UNK
  5. SIMVASTATIN [Concomitant]
     Indication: BLOOD CHOLESTEROL INCREASED
     Dosage: 40 MG, 1X/DAY
     Route: 048
  6. MORPHINE [Concomitant]
     Indication: FEELING ABNORMAL
     Dosage: UNK
  7. METOPROLOL TARTRATE [Concomitant]
     Dosage: 50 MG, 1X/DAY
     Route: 048
  8. FUROSEMIDE [Concomitant]
     Dosage: 20 MG, 1X/DAY
  9. COLACE [Concomitant]
     Dosage: 100 MG, AS NEEDED
     Route: 048
  10. SENNA [Concomitant]
     Dosage: 8.6 MG, 2X/DAY PRN
  11. PERCOCET [Concomitant]
     Dosage: 7.5-325 MG Q 4- 6 HOURS PRN PAIN
     Route: 048
  12. LEVOTHROID [Concomitant]
     Dosage: 75 UG, 1X/DAY
     Route: 048
  13. CLOTRIMAZOLE [Concomitant]
     Dosage: 1 %, 2X/DAY
     Route: 061
  14. NORVASC [Concomitant]
     Dosage: 10 MG, 1X/DAY
     Route: 048
  15. ANUSOL HC [Concomitant]
     Dosage: ONE SUPP EVERY 12 HOURS AS NEEDED FOR 6 DAYS
  16. LORTAB [Concomitant]
     Dosage: 7.5-500 MG TABS, ONE TABLET EVERY SIX HOURS PRN PAIN
  17. LOSARTAN POTASSIUM [Concomitant]
     Dosage: 25 MG, 2X/DAY
  18. DUONEB [Concomitant]
     Dosage: INHALATION Q 6 HOURS
  19. ATROPINE OPHTHALMIC [Concomitant]
     Dosage: ONE TO TWO DROPS BOT EYES Q 4 HOURS PRN
  20. FENTANYL [Concomitant]
     Dosage: 50-100 MCG  Q 1 HOUR PRN
     Route: 042
  21. HALDOL [Concomitant]
     Dosage: 3 MG, Q 6 PRN
  22. ATIVAN [Concomitant]
     Dosage: 1-2 MG Q 6 PRN
  23. MAGNESIUM HYDROXIDE [Concomitant]
     Dosage: 30 ML, AS NEEDED
  24. COMPAZINE [Concomitant]
     Indication: PROPHYLAXIS OF NAUSEA AND VOMITING
     Dosage: 25 UNK, 2X/DAY
  25. LOSARTAN [Concomitant]
     Dosage: 50 MG, UNK
  26. COLAC [Concomitant]
     Dosage: 100 MG, 2X/DAY
  27. LOTRIMIN [Concomitant]
     Dosage: 1 %, 2X/DAY

REACTIONS (21)
  - Renal failure acute [Fatal]
  - Disease progression [Fatal]
  - Metastatic renal cell carcinoma [Fatal]
  - Pulmonary oedema [Unknown]
  - Nausea [Not Recovered/Not Resolved]
  - Hypertension [Unknown]
  - Fatigue [Not Recovered/Not Resolved]
  - Diarrhoea [Not Recovered/Not Resolved]
  - Oral pain [Unknown]
  - Blood pressure increased [Unknown]
  - Dysgeusia [Not Recovered/Not Resolved]
  - Paraesthesia oral [Unknown]
  - Decreased appetite [Not Recovered/Not Resolved]
  - Hair colour changes [Unknown]
  - Blister [Unknown]
  - Hyperkeratosis [Unknown]
  - Pain in extremity [Unknown]
  - Vomiting [Unknown]
  - Musculoskeletal chest pain [Unknown]
  - Flank pain [Unknown]
  - Palmar-plantar erythrodysaesthesia syndrome [Unknown]
